FAERS Safety Report 5804049-3 (Version None)
Quarter: 2008Q3

REPORT INFORMATION
  Report Type: 
  Country: None (occurrence: None)
  Receive Date: 20080703
  Receipt Date: 20080125
  Transmission Date: 20090109
  Serious: Yes (Other)
  Sender: FDA-Public Use
  Company Number: PHEH2008US01240

PATIENT
  Sex: Male

DRUGS (1)
  1. PROLEUKIN [Suspect]

REACTIONS (3)
  - BLOOD PRESSURE DECREASED [None]
  - EJECTION FRACTION [None]
  - MYOCARDITIS [None]
